FAERS Safety Report 21082548 (Version 1)
Quarter: 2022Q3

REPORT INFORMATION
  Report Type: Spontaneous
  Country: US (occurrence: US)
  Receive Date: 20220714
  Receipt Date: 20220714
  Transmission Date: 20221027
  Serious: No
  Sender: FDA-Public Use
  Company Number: US-MYLANLABS-2022M1048976

PATIENT
  Sex: Female
  Weight: 77.11 kg

DRUGS (4)
  1. CANDESARTAN [Suspect]
     Active Substance: CANDESARTAN
     Indication: Product used for unknown indication
     Dosage: 32 MILLIGRAM
     Route: 065
  2. CANDESARTAN [Suspect]
     Active Substance: CANDESARTAN
     Dosage: 16 MILLIGRAM
     Route: 065
  3. LEVOXYL [Suspect]
     Active Substance: LEVOTHYROXINE SODIUM
     Indication: Thyroid disorder
     Dosage: 75 MICROGRAM, QD (ONCE A DAY)
     Route: 065
  4. GLIPIZIDE [Concomitant]
     Active Substance: GLIPIZIDE
     Indication: Diabetes mellitus
     Dosage: 5 MILLIGRAM, BID (5MG TABLET TWO IN THE MORNING ONE AT NIGHT)
     Route: 065

REACTIONS (3)
  - Blood pressure decreased [Unknown]
  - Heart rate increased [Unknown]
  - Hyperhidrosis [Unknown]
